FAERS Safety Report 5580117-9 (Version None)
Quarter: 2007Q4

REPORT INFORMATION
  Report Type: 
  Country: None (occurrence: None)
  Receive Date: 20071227
  Receipt Date: 20071227
  Transmission Date: 20080405
  Serious: Yes (Hospitalization)
  Sender: FDA-Public Use
  Company Number: None

PATIENT
  Sex: Male
  Weight: 83.2 kg

DRUGS (3)
  1. CLOFARABINE [Suspect]
     Indication: STEM CELL TRANSPLANT
     Dosage: 88 MG DAILY IV DRIP
     Route: 041
     Dates: start: 20071129, end: 20071203
  2. CAMPATH [Suspect]
     Indication: STEM CELL TRANSPLANT
     Dosage: 20 MG DAILY IV DRIP
     Route: 041
     Dates: start: 20071129, end: 20071203
  3. MELPHALAN [Suspect]
     Dosage: 310 DAILY IV DRIP
     Route: 041
     Dates: start: 20071204, end: 20071204

REACTIONS (8)
  - ASCITES [None]
  - CLOSTRIDIAL INFECTION [None]
  - COLITIS [None]
  - DEHYDRATION [None]
  - DYSPNOEA [None]
  - GASTROINTESTINAL DISORDER [None]
  - ISCHAEMIA [None]
  - PSEUDOMEMBRANOUS COLITIS [None]
